FAERS Safety Report 11055099 (Version 1)
Quarter: 2015Q2

REPORT INFORMATION
  Report Type: Spontaneous
  Country: US (occurrence: None)
  Receive Date: 20150421
  Receipt Date: 20150421
  Transmission Date: 20150821
  Serious: No
  Sender: FDA-Public Use
  Company Number: None

PATIENT
  Age: 37 Year
  Sex: Female
  Weight: 72.58 kg

DRUGS (6)
  1. NIOXIN SHAMPOO [Concomitant]
     Active Substance: UNSPECIFIED INGREDIENT
  2. PRENATAL VITAMINS [Concomitant]
     Active Substance: VITAMINS
  3. VENLAFAXINE [Concomitant]
     Active Substance: VENLAFAXINE HYDROCHLORIDE
  4. BIOTIN [Concomitant]
     Active Substance: BIOTIN
  5. MIRENA [Suspect]
     Active Substance: LEVONORGESTREL
     Dates: start: 20141222, end: 20150420
  6. LEVOTHYROXINE [Concomitant]
     Active Substance: LEVOTHYROXINE

REACTIONS (1)
  - Alopecia [None]

NARRATIVE: CASE EVENT DATE: 20141222
